FAERS Safety Report 14370464 (Version 2)
Quarter: 2018Q2

REPORT INFORMATION
  Report Type: Spontaneous
  Country: US (occurrence: US)
  Receive Date: 20180110
  Receipt Date: 20180510
  Transmission Date: 20180711
  Serious: No
  Sender: FDA-Public Use
  Company Number: US-PFIZER INC-2018006395

PATIENT
  Age: 53 Year
  Sex: Female
  Weight: 242 kg

DRUGS (6)
  1. NEOSAR [Concomitant]
     Active Substance: CYCLOPHOSPHAMIDE
     Dosage: UNK
  2. DOCETAXEL. [Suspect]
     Active Substance: DOCETAXEL
     Indication: BREAST CANCER
     Dosage: 150MG, CYCLIC (EVERY 3 WEEKS, NUMBER OF CYCLES 7)
     Dates: start: 20111010, end: 20120409
  3. TAXOTERE [Suspect]
     Active Substance: DOCETAXEL
     Indication: BREAST CANCER
     Dosage: 150MG, CYCLIC (EVERY 3 WEEKS, NUMBER OF CYCLES 7)
     Dates: start: 20111010, end: 20120409
  4. CYTOXAN [Concomitant]
     Active Substance: CYCLOPHOSPHAMIDE
     Dosage: 1200 MG, UNK
  5. DOCETAXEL. [Suspect]
     Active Substance: DOCETAXEL
     Indication: BREAST CANCER
     Dosage: 150MG, CYCLIC (EVERY 3 WEEKS, NUMBER OF CYCLES 7)
     Dates: start: 20111010, end: 20120409
  6. DOCEFREZ [Suspect]
     Active Substance: DOCETAXEL ANHYDROUS
     Dosage: UNK
     Dates: start: 20111010, end: 20120409

REACTIONS (5)
  - Alopecia [Recovering/Resolving]
  - Hair colour changes [Recovering/Resolving]
  - Madarosis [Recovering/Resolving]
  - Hair disorder [Recovering/Resolving]
  - Hair texture abnormal [Recovering/Resolving]

NARRATIVE: CASE EVENT DATE: 201110
